FAERS Safety Report 26010350 (Version 1)
Quarter: 2025Q4

REPORT INFORMATION
  Report Type: Spontaneous
  Country: US (occurrence: US)
  Receive Date: 20251107
  Receipt Date: 20251107
  Transmission Date: 20260117
  Serious: No
  Sender: GLAXOSMITHKLINE
  Company Number: US-GSK-US2025AMR131426

PATIENT
  Age: 87 Year
  Sex: Female

DRUGS (2)
  1. BREO ELLIPTA [Suspect]
     Active Substance: FLUTICASONE FUROATE\VILANTEROL TRIFENATATE
     Indication: Product used for unknown indication
     Dosage: UNK
  2. COMBIVENT RESPIMAT [Suspect]
     Active Substance: ALBUTEROL SULFATE\IPRATROPIUM BROMIDE
     Indication: Chronic obstructive pulmonary disease
     Dosage: 1 PUFF(S), QD

REACTIONS (7)
  - Blood pressure increased [Not Recovered/Not Resolved]
  - Tooth loss [Recovered/Resolved]
  - Gingival pain [Unknown]
  - Pain in extremity [Unknown]
  - Back pain [Unknown]
  - Fatigue [Unknown]
  - Osteoporosis [Unknown]

NARRATIVE: CASE EVENT DATE: 20231101
